FAERS Safety Report 6731001-6 (Version None)
Quarter: 2010Q2

REPORT INFORMATION
  Report Type: 
  Country: None (occurrence: None)
  Receive Date: 20100518
  Receipt Date: 20030519
  Transmission Date: 20101027
  Serious: Yes (Other)
  Sender: FDA-Public Use
  Company Number: GB-BAYER-201024456GPV

PATIENT

DRUGS (7)
  1. ADALAT [Suspect]
     Indication: PREGNANCY INDUCED HYPERTENSION
     Route: 064
  2. TRANDATE [Suspect]
     Indication: PREGNANCY INDUCED HYPERTENSION
     Route: 064
  3. PENTASTARCH [Concomitant]
     Indication: HYPOTENSION
     Route: 064
  4. KETAMINE HCL [Concomitant]
     Indication: INDUCTION OF ANAESTHESIA
     Route: 064
  5. SUXAMETHONIUM [Concomitant]
     Indication: DRUG USE FOR UNKNOWN INDICATION
     Route: 064
  6. NITROUS OXIDE [Concomitant]
     Indication: MAINTENANCE OF ANAESTHESIA
     Route: 064
  7. ISOFLURANE [Concomitant]
     Indication: MAINTENANCE OF ANAESTHESIA
     Route: 064

REACTIONS (2)
  - BRADYCARDIA FOETAL [None]
  - FOETAL HEART RATE DECELERATION [None]
